FAERS Safety Report 13400115 (Version 1)
Quarter: 2017Q2

REPORT INFORMATION
  Report Type: Spontaneous
  Country: US (occurrence: US)
  Receive Date: 20170404
  Receipt Date: 20170404
  Transmission Date: 20170830
  Serious: Yes (Hospitalization)
  Sender: FDA-Public Use
  Company Number: None

PATIENT
  Age: 66 Year
  Sex: Female
  Weight: 71.94 kg

DRUGS (16)
  1. ACYCLOVIR. [Concomitant]
     Active Substance: ACYCLOVIR
  2. BACLOFEN. [Concomitant]
     Active Substance: BACLOFEN
  3. RAMIPRIL. [Concomitant]
     Active Substance: RAMIPRIL
  4. ONDANSETRON [Concomitant]
     Active Substance: ONDANSETRON
  5. ALEMTUZUMAB [Suspect]
     Active Substance: ALEMTUZUMAB
     Indication: MULTIPLE SCLEROSIS RELAPSE
     Dosage: DOSE AMOUNT - X 3 DAYS?ROUTE - INFUSION?FEB 2014 FIRST COURSE
     Dates: start: 201402
  6. NAPROXEN SODIUM. [Concomitant]
     Active Substance: NAPROXEN SODIUM
  7. CYMBALTA [Concomitant]
     Active Substance: DULOXETINE HYDROCHLORIDE
  8. HYSOCYAMINE SULFATE .125MG [Concomitant]
     Active Substance: HYOSCYAMINE SULFATE
  9. HYDROCHLOROTHIAZIDE. [Concomitant]
     Active Substance: HYDROCHLOROTHIAZIDE
  10. BOTOX [Concomitant]
     Active Substance: ONABOTULINUMTOXINA
  11. TIZANIDINE. [Concomitant]
     Active Substance: TIZANIDINE
  12. AMPYRA [Concomitant]
     Active Substance: DALFAMPRIDINE
  13. HYDROCODONE [Concomitant]
     Active Substance: HYDROCODONE
  14. METOPROLOL ER [Concomitant]
     Active Substance: METOPROLOL SUCCINATE
  15. QUETIAPINE. [Concomitant]
     Active Substance: QUETIAPINE
  16. VITAMIN D [Concomitant]
     Active Substance: CHOLECALCIFEROL

REACTIONS (6)
  - Dehydration [None]
  - Nausea [None]
  - Diarrhoea [None]
  - Multiple sclerosis relapse [None]
  - Hemiparesis [None]
  - Blood creatinine increased [None]

NARRATIVE: CASE EVENT DATE: 20170216
